FAERS Safety Report 4267239-X (Version None)
Quarter: 2004Q1

REPORT INFORMATION
  Report Type: 
  Country: None (occurrence: None)
  Receive Date: 20040107
  Receipt Date: 20031223
  Transmission Date: 20041129
  Serious: Yes (Hospitalization)
  Sender: FDA-Public Use
  Company Number: A03200303036

PATIENT
  Age: 36 Year
  Sex: Male

DRUGS (3)
  1. ELOXATIN [Suspect]
     Indication: COLORECTAL CANCER
     Dosage: 211 MG Q2W - INTRAVENOUS NOS
     Route: 042
     Dates: start: 20031219, end: 20031219
  2. FLUOROURACIL [Concomitant]
  3. LEUCOVORIN CALCIUM [Concomitant]

REACTIONS (5)
  - DYSPEPSIA [None]
  - ELECTROCARDIOGRAM T WAVE ABNORMAL [None]
  - ERYTHEMA [None]
  - FLUSHING [None]
  - PRURITUS [None]
